FAERS Safety Report 9731466 (Version 1)
Quarter: 2013Q4

REPORT INFORMATION
  Report Type: Spontaneous
  Country: US (occurrence: US)
  Receive Date: 20131203
  Receipt Date: 20131203
  Transmission Date: 20140711
  Serious: Yes (Other)
  Sender: FDA-Public Use
  Company Number: US-ACORDA-ACO_100575_2013

PATIENT
  Age: 66 Year
  Sex: Male
  Weight: 88.44 kg

DRUGS (3)
  1. ZANAFLEX [Suspect]
     Indication: MUSCLE RELAXANT THERAPY
     Dosage: UNK,UNK
     Route: 065
     Dates: end: 2013
  2. VICODIN [Suspect]
     Indication: PAIN
     Dosage: 5/500 MG, UNK
     Route: 065
     Dates: end: 2013
  3. LYRICA [Suspect]
     Indication: DIABETIC NEUROPATHY
     Dosage: 300 MG, BID
     Route: 065

REACTIONS (2)
  - Surgery [Unknown]
  - Drug hypersensitivity [Unknown]
